FAERS Safety Report 8294389-3 (Version None)
Quarter: 2012Q2

REPORT INFORMATION
  Report Type: 
  Country: None (occurrence: None)
  Receive Date: 20120416
  Receipt Date: 20120412
  Transmission Date: 20120825
  Serious: Yes (Other)
  Sender: FDA-Public Use
  Company Number: ADR-2011-10688

PATIENT
  Sex: Male

DRUGS (3)
  1. BUPIVACAINE INTRATHECAL [Concomitant]
  2. MORPHINE [Concomitant]
  3. LIORESAL [Suspect]
     Indication: MUSCLE SPASTICITY
     Dosage: 9 MCG, DAILY, INTRATHEC
     Route: 037
     Dates: start: 20110228, end: 20110610

REACTIONS (12)
  - IMPLANT SITE INFLAMMATION [None]
  - MEDICAL DEVICE COMPLICATION [None]
  - PARAESTHESIA [None]
  - POST PROCEDURAL COMPLICATION [None]
  - GROIN PAIN [None]
  - FEELING ABNORMAL [None]
  - BACK PAIN [None]
  - GRANULOMA [None]
  - HYPOAESTHESIA [None]
  - ACTIVITIES OF DAILY LIVING IMPAIRED [None]
  - NECK PAIN [None]
  - ERYTHEMA [None]
